FAERS Safety Report 8557848-1 (Version None)
Quarter: 2012Q3

REPORT INFORMATION
  Report Type: 
  Country: None (occurrence: None)
  Receive Date: 20120801
  Receipt Date: 20120725
  Transmission Date: 20120928
  Serious: Yes (Other)
  Sender: FDA-Public Use
  Company Number: US-GLAXOSMITHKLINE-A0987781A

PATIENT
  Sex: Female

DRUGS (1)
  1. VOTRIENT [Suspect]
     Dosage: 800MG PER DAY
     Route: 065

REACTIONS (6)
  - ALOPECIA [None]
  - BLISTER [None]
  - HEPATIC ENZYME INCREASED [None]
  - HAIR COLOUR CHANGES [None]
  - HYPERKERATOSIS [None]
  - DIARRHOEA [None]
